FAERS Safety Report 10242091 (Version 3)
Quarter: 2014Q3

REPORT INFORMATION
  Report Type: Spontaneous
  Country: US (occurrence: US)
  Receive Date: 20140617
  Receipt Date: 20140811
  Transmission Date: 20150326
  Serious: Yes (Disabling)
  Sender: FDA-Public Use
  Company Number: US-PERRIGO-14US004799

PATIENT
  Age: 63 Year
  Sex: Male
  Weight: 145.13 kg

DRUGS (1)
  1. SALINE NASAL [Suspect]
     Active Substance: SODIUM CHLORIDE
     Indication: NASAL DRYNESS
     Dosage: 1 SPRAY EACH NOSTRIL, ONCE
     Route: 045
     Dates: start: 20140501, end: 20140501

REACTIONS (3)
  - Malaise [Recovered/Resolved]
  - Dizziness [Recovered/Resolved]
  - Fatigue [Recovered/Resolved]

NARRATIVE: CASE EVENT DATE: 20140501
